FAERS Safety Report 9274877 (Version 1)
Quarter: 2013Q2

REPORT INFORMATION
  Report Type: Report from Study
  Country: US (occurrence: US)
  Receive Date: 20130507
  Receipt Date: 20130507
  Transmission Date: 20140414
  Serious: Yes (Other)
  Sender: FDA-Public Use
  Company Number: US-JNJFOC-20130501014

PATIENT
  Age: 72 Year
  Sex: Male
  Weight: 99.79 kg

DRUGS (5)
  1. XARELTO [Suspect]
     Indication: ARRHYTHMIA
     Route: 048
     Dates: start: 201302
  2. ATIVAN [Concomitant]
     Route: 048
  3. SOTALOL [Concomitant]
     Indication: ARRHYTHMIA
     Route: 065
     Dates: start: 201302
  4. DIOVAN [Concomitant]
     Route: 048
     Dates: start: 2010
  5. LASIX [Concomitant]
     Indication: FLUID RETENTION
     Route: 048
     Dates: start: 201302

REACTIONS (3)
  - Tooth extraction [Not Recovered/Not Resolved]
  - Haemorrhage [Recovered/Resolved]
  - Implant site haemorrhage [Recovered/Resolved]
